FAERS Safety Report 5064847-3 (Version None)
Quarter: 2006Q3

REPORT INFORMATION
  Report Type: 
  Country: None (occurrence: None)
  Receive Date: 20060728
  Receipt Date: 20060426
  Transmission Date: 20061208
  Serious: Yes (Death, Other)
  Sender: FDA-Public Use
  Company Number: PHBS2006JP06241

PATIENT
  Age: 90 Year
  Sex: Male
  Weight: 30 kg

DRUGS (7)
  1. GLEEVEC [Suspect]
     Indication: GASTROINTESTINAL STROMAL TUMOUR
     Dosage: 100 MG/D
     Route: 048
     Dates: start: 20050713, end: 20051006
  2. PROTECADIN [Suspect]
     Dosage: 20 MG/D
     Route: 048
     Dates: start: 20050601, end: 20051006
  3. LASIX [Suspect]
     Dosage: 20 MG/D
     Route: 048
     Dates: start: 20050601, end: 20051006
  4. MAGNESIUM OXIDE [Suspect]
     Indication: CONSTIPATION
     Dosage: 1.5 G/D
     Route: 048
     Dates: start: 20050601, end: 20051006
  5. HALCION [Suspect]
     Dosage: 0.5 MG/D
     Route: 048
     Dates: start: 20050601, end: 20051006
  6. FRANDOL [Suspect]
     Dosage: 40 MG/D
     Route: 061
     Dates: start: 20050601, end: 20051006
  7. RACOL [Concomitant]
     Route: 048

REACTIONS (17)
  - BLOOD PRESSURE DECREASED [None]
  - BRONCHOPNEUMONIA [None]
  - CRYPTOGENIC ORGANISING PNEUMONIA [None]
  - DEPRESSED LEVEL OF CONSCIOUSNESS [None]
  - DISSEMINATED INTRAVASCULAR COAGULATION [None]
  - EXTRASKELETAL OSSIFICATION [None]
  - GASTROINTESTINAL STROMAL TUMOUR [None]
  - INTERSTITIAL LUNG DISEASE [None]
  - KLEBSIELLA INFECTION [None]
  - MALIGNANT NEOPLASM PROGRESSION [None]
  - OXYGEN SATURATION DECREASED [None]
  - PLATELET COUNT DECREASED [None]
  - PNEUMONIA ASPIRATION [None]
  - PYREXIA [None]
  - RESPIRATORY FAILURE [None]
  - STAPHYLOCOCCAL INFECTION [None]
  - SYSTEMIC INFLAMMATORY RESPONSE SYNDROME [None]
